FAERS Safety Report 16494858 (Version 2)
Quarter: 2019Q3

REPORT INFORMATION
  Report Type: Spontaneous
  Country: HU (occurrence: HU)
  Receive Date: 20190628
  Receipt Date: 20190705
  Transmission Date: 20191004
  Serious: Yes (Death, Life-Threatening, Hospitalization, Other)
  Sender: FDA-Public Use
  Company Number: HU-PFIZER INC-2019274571

PATIENT
  Age: 78 Year
  Sex: Male

DRUGS (16)
  1. AMOXICILLIN TRIHYDRATE/CLAVULANIC ACID [Suspect]
     Active Substance: AMOXICILLIN\CLAVULANIC ACID
     Indication: PROPHYLAXIS
     Dosage: UNK
  2. CILASTATIN/IMIPENEM [Suspect]
     Active Substance: CILASTATIN SODIUM\IMIPENEM
     Dosage: UNK (FOR 5 DAYS)
  3. AVIBACTAM SODIUM/CEFTAZIDIME PENTAHYDRATE [Suspect]
     Active Substance: AVIBACTAM SODIUM\CEFTAZIDIME
     Dosage: UNK (FOR 7 DAYS)
     Route: 051
  4. CEFTAZIDIME. [Suspect]
     Active Substance: CEFTAZIDIME
     Dosage: UNK (FOR 6 DAYS WITH GENTAMICIN)
  5. PIPERACILLIN/TAZOBACTAM [Suspect]
     Active Substance: PIPERACILLIN SODIUM\TAZOBACTAM SODIUM
     Dosage: UNK (TAKEN FOR 6 DAYS)
  6. MEROPENEM. [Suspect]
     Active Substance: MEROPENEM
     Dosage: UNK (FOR 3 DAYS)
     Route: 051
  7. METHENAMINE [Concomitant]
     Active Substance: METHENAMINE
     Dosage: UNK
  8. VANCOMYCIN [Suspect]
     Active Substance: VANCOMYCIN
     Dosage: UNK
     Route: 048
  9. FIDAXOMICIN [Suspect]
     Active Substance: FIDAXOMICIN
     Dosage: UNK (FOR 10 DAYS)
  10. FOSFOMYCIN [Suspect]
     Active Substance: FOSFOMYCIN
     Dosage: UNK
  11. BETADIN [Concomitant]
     Active Substance: POVIDONE-IODINE
     Dosage: UNK
  12. CEFUROXIM [Suspect]
     Active Substance: CEFUROXIME
     Dosage: UNK (FOR 6 DAYS)
  13. GENTAMCIN [Suspect]
     Active Substance: GENTAMICIN
     Dosage: UNK (FOR 6 DAYS WITH CEFTAZIDIME)
  14. SULFAMETHOXAZOLE AND TRIMETHOPRIM [Suspect]
     Active Substance: SULFAMETHOXAZOLE\TRIMETHOPRIM
     Dosage: UNK
  15. ASCORBIC ACID. [Concomitant]
     Active Substance: ASCORBIC ACID
     Dosage: UNK
  16. METRONIDAZOLE. [Suspect]
     Active Substance: METRONIDAZOLE
     Indication: PROPHYLAXIS
     Dosage: UNK

REACTIONS (14)
  - Dyspnoea [Unknown]
  - Pathogen resistance [Fatal]
  - Melaena [Unknown]
  - Clostridium difficile infection [Unknown]
  - Chest pain [Unknown]
  - Chills [Unknown]
  - Malaise [Unknown]
  - Respiratory failure [Unknown]
  - Gastroenteritis [Unknown]
  - Drug resistance [Unknown]
  - Diarrhoea [Unknown]
  - Pyrexia [Unknown]
  - Hypoxia [Unknown]
  - Sepsis [Fatal]
